FAERS Safety Report 16493841 (Version 2)
Quarter: 2019Q2

REPORT INFORMATION
  Report Type: Spontaneous
  Country: US (occurrence: US)
  Receive Date: 20190628
  Receipt Date: 20190628
  Transmission Date: 20190711
  Serious: No
  Sender: FDA-Public Use
  Company Number: US-BAYER-2019-123128

PATIENT
  Age: 75 Year
  Sex: Female
  Weight: 58 kg

DRUGS (2)
  1. BENEFIBER FIBER SUPPLEMENT [Concomitant]
  2. MIRALAX [Suspect]
     Active Substance: POLYETHYLENE GLYCOL 3350
     Dosage: LESS THAN CAP FULL TWICE DAILY
     Route: 048
     Dates: start: 201903

REACTIONS (2)
  - Product use issue [None]
  - Incorrect dose administered [Unknown]
